FAERS Safety Report 9729814 (Version 2)
Quarter: 2013Q4

REPORT INFORMATION
  Report Type: Spontaneous
  Country: US (occurrence: US)
  Receive Date: 20131204
  Receipt Date: 20131204
  Transmission Date: 20140711
  Serious: No
  Sender: FDA-Public Use
  Company Number: US-GILEAD-2009-0022357

PATIENT
  Sex: Male
  Weight: 109.77 kg

DRUGS (18)
  1. LETAIRIS [Suspect]
     Indication: PULMONARY ARTERIAL HYPERTENSION
     Route: 048
     Dates: start: 20090205
  2. DIGOXIN [Concomitant]
  3. COREG [Concomitant]
  4. ALTACE [Concomitant]
  5. BUMEX [Concomitant]
  6. ALDACTONE [Concomitant]
  7. ASPIRIN [Concomitant]
  8. PULMICORT [Concomitant]
  9. BROVANA [Concomitant]
  10. SPIRIVA [Concomitant]
  11. ALBUTEROL [Concomitant]
  12. NOVOLOG [Concomitant]
  13. ACTOS [Concomitant]
  14. PREDNISONE [Concomitant]
  15. MINOCIN [Concomitant]
  16. TRAZODONE [Concomitant]
  17. VITAMIN C [Concomitant]
  18. FISH OIL [Concomitant]

REACTIONS (1)
  - Dyspnoea [Unknown]
